FAERS Safety Report 7116236-5 (Version None)
Quarter: 2010Q4

REPORT INFORMATION
  Report Type: 
  Country: None (occurrence: None)
  Receive Date: 20101122
  Receipt Date: 20101111
  Transmission Date: 20110411
  Serious: Yes (Other)
  Sender: FDA-Public Use
  Company Number: US-JNJFOC-20101104412

PATIENT
  Sex: Male
  Weight: 68.04 kg

DRUGS (7)
  1. TOPAMAX [Suspect]
     Indication: GRAND MAL CONVULSION
     Route: 048
  2. TOPAMAX [Suspect]
     Route: 048
  3. TOPIRAMATE [Suspect]
     Indication: GRAND MAL CONVULSION
     Route: 048
  4. DILANTIN [Suspect]
     Indication: GRAND MAL CONVULSION
     Route: 048
  5. PHENYTOIN [Concomitant]
     Indication: CONVULSION
     Route: 048
  6. COLAZAL [Concomitant]
     Indication: COLITIS
     Route: 048
  7. DEPAKOTE [Concomitant]
     Indication: CONVULSION
     Route: 048

REACTIONS (2)
  - AURA [None]
  - PARANOIA [None]
